FAERS Safety Report 7357540-5 (Version None)
Quarter: 2011Q1

REPORT INFORMATION
  Report Type: 
  Country: None (occurrence: None)
  Receive Date: 20110317
  Receipt Date: 20110314
  Transmission Date: 20110831
  Serious: Yes (Hospitalization)
  Sender: FDA-Public Use
  Company Number: US-ELI_LILLY_AND_COMPANY-US201103004214

PATIENT
  Sex: Female

DRUGS (1)
  1. BYETTA [Suspect]
     Indication: PRODUCT USED FOR UNKNOWN INDICATION
     Dosage: 5 UG, 2/D
     Route: 058

REACTIONS (5)
  - CYSTITIS INTERSTITIAL [None]
  - ABDOMINAL PAIN [None]
  - ANORECTAL INFECTION [None]
  - EXPIRED DRUG ADMINISTERED [None]
  - UTERINE INFECTION [None]
